FAERS Safety Report 5785162-6 (Version None)
Quarter: 2008Q2

REPORT INFORMATION
  Report Type: 
  Country: None (occurrence: None)
  Receive Date: 20080624
  Receipt Date: 20070430
  Transmission Date: 20081010
  Serious: No
  Sender: FDA-Public Use
  Company Number: US-ASTRAZENECA-2007UW09243

PATIENT
  Sex: Female

DRUGS (5)
  1. PULMICORT-100 [Suspect]
     Indication: ASTHMA
     Dosage: 200 MCG X 2 PUFFS IN THE MORNING
     Route: 055
  2. PULMICORT-100 [Suspect]
     Indication: CHRONIC OBSTRUCTIVE PULMONARY DISEASE
     Dosage: 200 MCG X 2 PUFFS IN THE MORNING
     Route: 055
  3. ATACAND HCT [Concomitant]
  4. RANITIDINE HCL [Concomitant]
  5. BUSPAR-GENERIC [Concomitant]

REACTIONS (4)
  - ABDOMINAL DISTENSION [None]
  - DYSPNOEA [None]
  - FLUID RETENTION [None]
  - INCREASED UPPER AIRWAY SECRETION [None]
